FAERS Safety Report 6545105-4 (Version None)
Quarter: 2010Q1

REPORT INFORMATION
  Report Type: 
  Country: None (occurrence: None)
  Receive Date: 20100121
  Receipt Date: 20100118
  Transmission Date: 20100710
  Serious: Yes (Hospitalization)
  Sender: FDA-Public Use
  Company Number: FR-SANOFI-AVENTIS-2010SA003004

PATIENT
  Age: 76 Year
  Sex: Female

DRUGS (4)
  1. ELOXATIN [Suspect]
     Dosage: DOSE:5 MILLIGRAM(S)/MILLILITRE
     Route: 041
     Dates: start: 20081211, end: 20081211
  2. FLUOROURACIL [Suspect]
     Route: 040
     Dates: start: 20081211, end: 20081211
  3. FLUOROURACIL [Suspect]
     Route: 042
     Dates: start: 20081212, end: 20081212
  4. ELVORINE [Suspect]
     Route: 042
     Dates: start: 20081211, end: 20081211

REACTIONS (4)
  - ASTHENIA [None]
  - CONFUSIONAL STATE [None]
  - EPISTAXIS [None]
  - GENERAL PHYSICAL HEALTH DETERIORATION [None]
